FAERS Safety Report 25582998 (Version 4)
Quarter: 2025Q3

REPORT INFORMATION
  Report Type: Spontaneous
  Country: JP (occurrence: JP)
  Receive Date: 20250721
  Receipt Date: 20250910
  Transmission Date: 20251020
  Serious: Yes (Life-Threatening, Hospitalization, Disabling, Other)
  Sender: ASTELLAS
  Company Number: JP-ASTELLAS-2025-AER-038526

PATIENT
  Age: 80 Year
  Sex: Male
  Weight: 59 kg

DRUGS (6)
  1. VYLOY [Suspect]
     Active Substance: ZOLBETUXIMAB-CLZB
     Indication: Gastric cancer
     Route: 042
     Dates: start: 20250708, end: 20250708
  2. Aloxi I.V. 0.75mg [Concomitant]
     Indication: Prophylaxis of nausea and vomiting
     Route: 042
     Dates: start: 20250708, end: 20250708
  3. DEXART injection 6.6mg [Concomitant]
     Indication: Prophylaxis of nausea and vomiting
     Route: 042
     Dates: start: 20250708, end: 20250708
  4. POLARAMINE Injection 5mg [Concomitant]
     Indication: Prophylaxis of nausea and vomiting
     Route: 042
     Dates: start: 20250708, end: 20250708
  5. Arokaris I.V.infusion 235mg [Concomitant]
     Indication: Prophylaxis of nausea and vomiting
     Route: 042
     Dates: start: 20250708, end: 20250708
  6. Solu-Cortef Injection 100mg [Concomitant]
     Indication: Infusion related reaction
     Route: 042
     Dates: start: 20250708, end: 20250708

REACTIONS (3)
  - Tumour lysis syndrome [Recovered/Resolved]
  - Infusion related reaction [Unknown]
  - Nausea [Unknown]

NARRATIVE: CASE EVENT DATE: 20250708
